FAERS Safety Report 19640020 (Version 2)
Quarter: 2021Q3

REPORT INFORMATION
  Report Type: Report from Study
  Country: US (occurrence: US)
  Receive Date: 20210730
  Receipt Date: 20210821
  Transmission Date: 20211014
  Serious: Yes (Other)
  Sender: FDA-Public Use
  Company Number: NVSC2021US167567

PATIENT
  Sex: Female

DRUGS (1)
  1. ENTRESTO [Suspect]
     Active Substance: SACUBITRIL\VALSARTAN
     Indication: PRODUCT USED FOR UNKNOWN INDICATION
     Dosage: 1 DF, BID (49/51 MG)
     Route: 048
     Dates: start: 20210616

REACTIONS (8)
  - Weight decreased [Unknown]
  - Decreased appetite [Unknown]
  - Tympanic membrane perforation [Unknown]
  - Diabetes mellitus [Unknown]
  - Cough [Unknown]
  - Emotional disorder [Unknown]
  - Hypoacusis [Unknown]
  - Memory impairment [Unknown]
